FAERS Safety Report 6997370-7 (Version None)
Quarter: 2010Q3

REPORT INFORMATION
  Report Type: 
  Country: None (occurrence: None)
  Receive Date: 20100918
  Receipt Date: 20091007
  Transmission Date: 20110219
  Serious: No
  Sender: FDA-Public Use
  Company Number: US-WYE-H11519409

PATIENT
  Age: 81 Year
  Sex: Female
  Weight: 60.38 kg

DRUGS (7)
  1. ADVIL PM [Suspect]
     Indication: INSOMNIA
     Dosage: 1-2 CAPLETS AT BED TIME
     Route: 048
     Dates: start: 20090930, end: 20091006
  2. VITAMINS [Concomitant]
  3. CALCIUM [Concomitant]
  4. VITAMIN D3 [Concomitant]
  5. ASCORBIC ACID [Concomitant]
  6. FOSAMAX [Concomitant]
  7. VITAMIN B1 TAB [Concomitant]

REACTIONS (2)
  - HANGOVER [None]
  - SOMNOLENCE [None]
